FAERS Safety Report 23971340 (Version 1)
Quarter: 2024Q2

REPORT INFORMATION
  Report Type: Spontaneous
  Country: ZA (occurrence: None)
  Receive Date: 20240613
  Receipt Date: 20240613
  Transmission Date: 20240717
  Serious: Yes (Death, Other)
  Sender: FDA-Public Use
  Company Number: 2024A134797

PATIENT
  Age: 84 Year
  Sex: Male

DRUGS (9)
  1. BUDESONIDE\FORMOTEROL FUMARATE DIHYDRATE [Suspect]
     Active Substance: BUDESONIDE\FORMOTEROL FUMARATE DIHYDRATE
     Route: 055
  2. NOVORAPID PENFILL CARTRIDGE [Concomitant]
  3. INSULIN DETEMIR [Concomitant]
     Active Substance: INSULIN DETEMIR
  4. LIPOGEN [Concomitant]
  5. RIVAROXABAN [Concomitant]
     Active Substance: RIVAROXABAN
  6. ECOTRIN [Concomitant]
     Active Substance: ASPIRIN
  7. SPIRACTIN [Concomitant]
  8. BISOPROLOL FUMARATE [Concomitant]
     Active Substance: BISOPROLOL FUMARATE
  9. AMIODARONE [Concomitant]
     Active Substance: AMIODARONE
     Dates: end: 20240517

REACTIONS (1)
  - Myocardial infarction [Fatal]

NARRATIVE: CASE EVENT DATE: 20240517
